FAERS Safety Report 9060733 (Version 1)
Quarter: 2013Q1

REPORT INFORMATION
  Report Type: Spontaneous
  Country: DK (occurrence: DK)
  Receive Date: 20130204
  Receipt Date: 20130204
  Transmission Date: 20140127
  Serious: Yes (Other)
  Sender: FDA-Public Use
  Company Number: DK-ROCHE-1183957

PATIENT
  Age: 38 None
  Sex: Female

DRUGS (19)
  1. HERCEPTIN [Suspect]
     Indication: PRODUCT USED FOR UNKNOWN INDICATION
     Route: 065
     Dates: start: 200609
  2. HERCEPTIN [Suspect]
     Route: 065
     Dates: start: 20090730
  3. HERCEPTIN [Suspect]
     Route: 065
     Dates: start: 20090910, end: 20120214
  4. HERCEPTIN [Suspect]
     Route: 065
     Dates: start: 201202, end: 20120424
  5. HERCEPTIN [Suspect]
     Route: 065
     Dates: start: 20120425
  6. XELODA [Suspect]
     Indication: PRODUCT USED FOR UNKNOWN INDICATION
     Route: 065
     Dates: start: 20100614, end: 20120214
  7. VINORELBINE [Suspect]
     Indication: PRODUCT USED FOR UNKNOWN INDICATION
     Route: 065
     Dates: start: 20090730
  8. ZOMETA [Suspect]
     Indication: PRODUCT USED FOR UNKNOWN INDICATION
     Route: 065
     Dates: start: 20090730
  9. ZOMETA [Suspect]
     Route: 065
     Dates: start: 20090910
  10. ZOMETA [Suspect]
     Route: 065
     Dates: start: 20100614, end: 20120214
  11. ZOMETA [Suspect]
     Route: 065
     Dates: start: 201202, end: 20120424
  12. ZOMETA [Suspect]
     Route: 065
     Dates: start: 20120425
  13. TAXOL [Suspect]
     Indication: PRODUCT USED FOR UNKNOWN INDICATION
     Route: 065
     Dates: start: 20090910
  14. LAPATINIB [Suspect]
     Indication: PRODUCT USED FOR UNKNOWN INDICATION
     Route: 065
     Dates: start: 20100614, end: 20120214
  15. GEMZAR [Suspect]
     Indication: PRODUCT USED FOR UNKNOWN INDICATION
     Route: 065
     Dates: start: 201202, end: 20120424
  16. HALAVEN [Suspect]
     Indication: PRODUCT USED FOR UNKNOWN INDICATION
     Route: 065
     Dates: start: 20120425
  17. EPIRUBICIN [Suspect]
     Indication: PRODUCT USED FOR UNKNOWN INDICATION
     Route: 065
     Dates: start: 200609
  18. 5-FLUOROURACIL [Suspect]
     Indication: PRODUCT USED FOR UNKNOWN INDICATION
     Route: 065
     Dates: start: 200609
  19. CYCLOPHOSPHAMIDE [Suspect]
     Indication: PRODUCT USED FOR UNKNOWN INDICATION
     Route: 065
     Dates: start: 200609

REACTIONS (5)
  - Metastases to liver [Not Recovered/Not Resolved]
  - Metastases to bone [Unknown]
  - Metastases to central nervous system [Not Recovered/Not Resolved]
  - Metastases to the mediastinum [Not Recovered/Not Resolved]
  - Metastases to spine [Unknown]
